FAERS Safety Report 7373339-8 (Version None)
Quarter: 2011Q1

REPORT INFORMATION
  Report Type: 
  Country: None (occurrence: None)
  Receive Date: 20110324
  Receipt Date: 20110317
  Transmission Date: 20110831
  Serious: Yes (Other)
  Sender: FDA-Public Use
  Company Number: KZ-ABBOTT-11P-230-0712669-00

PATIENT
  Age: 11 Year
  Sex: Female

DRUGS (4)
  1. CARBAMAZEPINE [Concomitant]
     Indication: PRODUCT USED FOR UNKNOWN INDICATION
  2. DEPAKENE [Suspect]
     Dosage: DAILY DOSE: 900MG
     Route: 048
  3. DEPAKENE [Suspect]
     Indication: EPILEPSY
     Dosage: DAILY DOSE: 150MG
     Route: 048
     Dates: start: 20100110, end: 20100121
  4. DEPAKENE [Suspect]
     Dosage: DAILY DOSE: 1200MG
     Route: 048

REACTIONS (4)
  - PRODUCT SUBSTITUTION ISSUE [None]
  - PRODUCT TASTE ABNORMAL [None]
  - CONVULSION [None]
  - DRUG INEFFECTIVE [None]
